FAERS Safety Report 10903417 (Version 1)
Quarter: 2015Q1

REPORT INFORMATION
  Report Type: Spontaneous
  Country: US (occurrence: None)
  Receive Date: 20150304
  Receipt Date: 20150304
  Transmission Date: 20150721
  Serious: Yes (Hospitalization)
  Sender: FDA-Public Use
  Company Number: None

PATIENT
  Age: 50 Year
  Sex: Male
  Weight: 68.04 kg

DRUGS (17)
  1. RIBAVIRIN 200 GILEAD SCIENCES, INC. [Suspect]
     Active Substance: RIBAVIRIN
     Indication: HEPATITIS C
     Dosage: 1000 1X DAILY
     Route: 048
     Dates: start: 20140115, end: 20140702
  2. ANTIHEMOPHILIC FACTOR [Concomitant]
     Active Substance: ANTIHEMOPHILIC FACTOR, HUMAN RECOMBINANT
  3. LACTULOSE. [Concomitant]
     Active Substance: LACTULOSE
  4. SPIRONOLACTONE. [Concomitant]
     Active Substance: SPIRONOLACTONE
  5. ALLOPURINOL. [Concomitant]
     Active Substance: ALLOPURINOL
  6. NITROFURANTOIN (MACROCRYSTALS) [Concomitant]
     Active Substance: NITROFURANTOIN
  7. OMEPRAZOLE. [Concomitant]
     Active Substance: OMEPRAZOLE
  8. FUROSEMIDE. [Concomitant]
     Active Substance: FUROSEMIDE
  9. MULTIVITAMIN-MINERAL [Concomitant]
  10. VITAMIN D [Concomitant]
     Active Substance: CHOLECALCIFEROL
  11. SOVALDI [Suspect]
     Active Substance: SOFOSBUVIR
     Indication: HEPATITIS C
     Dosage: 400 1X DAILY
     Route: 048
     Dates: start: 20140115, end: 20140702
  12. BUMETANIDE. [Concomitant]
     Active Substance: BUMETANIDE
  13. RALTEGRAVIR POTASSIUM [Concomitant]
     Active Substance: RALTEGRAVIR POTASSIUM
  14. RIFAXIMIN [Concomitant]
     Active Substance: RIFAXIMIN
  15. TRAMADOL [Concomitant]
     Active Substance: TRAMADOL
  16. ZINC SULFATE [Concomitant]
     Active Substance: ZINC SULFATE\ZINC SULFATE ANHYDROUS
  17. EMTRICITABINE-TENOFOVIR [Concomitant]

REACTIONS (12)
  - Dialysis [None]
  - Encephalopathy [None]
  - Cardiac aneurysm [None]
  - Hyperkalaemia [None]
  - Procedural complication [None]
  - Liver transplant [None]
  - Urine analysis abnormal [None]
  - Atrial fibrillation [None]
  - Acute kidney injury [None]
  - Cardiac arrest [None]
  - Lactobacillus test positive [None]
  - Fatigue [None]

NARRATIVE: CASE EVENT DATE: 20140523
